APPROVED DRUG PRODUCT: BACLOFEN
Active Ingredient: BACLOFEN
Strength: 20MG
Dosage Form/Route: TABLET;ORAL
Application: A074698 | Product #002
Applicant: WATSON LABORATORIES INC
Approved: Aug 20, 1996 | RLD: No | RS: No | Type: DISCN